FAERS Safety Report 7584940-0 (Version None)
Quarter: 2011Q2

REPORT INFORMATION
  Report Type: 
  Country: None (occurrence: None)
  Receive Date: 20110630
  Receipt Date: 20110627
  Transmission Date: 20111010
  Serious: Yes (Hospitalization)
  Sender: FDA-Public Use
  Company Number: FR-ABBOTT-11P-056-0834651-00

PATIENT
  Sex: Female

DRUGS (5)
  1. NORVIR [Suspect]
     Route: 048
     Dates: start: 20110426, end: 20110508
  2. ABACAVIR SULFATE AND LAMIVUDINE [Concomitant]
     Indication: HIV TEST POSITIVE
     Dates: start: 20090629
  3. ISENTRESS [Concomitant]
     Indication: HIV TEST POSITIVE
  4. NORVIR [Suspect]
     Indication: HIV TEST POSITIVE
     Route: 048
     Dates: start: 20090306
  5. TELZIR [Suspect]
     Indication: HIV TEST POSITIVE
     Route: 048
     Dates: start: 20090306, end: 20110508

REACTIONS (10)
  - POLYURIA [None]
  - GLYCOSURIA [None]
  - INSULIN RESISTANCE [None]
  - RENAL FAILURE [None]
  - HYPERGLYCAEMIA [None]
  - ASTHENIA [None]
  - HYPERCALCAEMIA [None]
  - WEIGHT DECREASED [None]
  - HYPOPHOSPHATAEMIA [None]
  - POLYDIPSIA [None]
